FAERS Safety Report 8134840-2 (Version None)
Quarter: 2012Q1

REPORT INFORMATION
  Report Type: 
  Country: None (occurrence: None)
  Receive Date: 20120210
  Receipt Date: 20120125
  Transmission Date: 20120608
  Serious: Yes (Other)
  Sender: FDA-Public Use
  Company Number: PERC20120017

PATIENT
  Age: 59 Year
  Sex: Female

DRUGS (1)
  1. PERCOCET [Suspect]
     Indication: PRODUCT USED FOR UNKNOWN INDICATION
     Dosage: 20/1300 MG, 4 IN 1 D, ORAL
     Route: 048

REACTIONS (5)
  - PRODUCT COLOUR ISSUE [None]
  - PRODUCT MEASURED POTENCY ISSUE [None]
  - PRODUCT QUALITY ISSUE [None]
  - FATIGUE [None]
  - DIZZINESS [None]
